FAERS Safety Report 15662214 (Version 2)
Quarter: 2018Q4

REPORT INFORMATION
  Report Type: Spontaneous
  Country: AU (occurrence: AU)
  Receive Date: 20181127
  Receipt Date: 20181205
  Transmission Date: 20190205
  Serious: Yes (Other)
  Sender: FDA-Public Use
  Company Number: AU-SA-2018SA307473

PATIENT
  Age: 58 Year
  Sex: Male

DRUGS (3)
  1. LIDOCAINE. [Suspect]
     Active Substance: LIDOCAINE
     Indication: LICHEN SCLEROSUS
     Dosage: GEL
     Route: 061
  2. MOMETASONE FUROATE. [Suspect]
     Active Substance: MOMETASONE FUROATE
     Indication: LICHEN SCLEROSUS
     Dosage: 0.1%, 60 G, ONCE A YEAR, OINTMENT
     Route: 061
  3. BETAMETHASONE DIPROPIONATE. [Suspect]
     Active Substance: BETAMETHASONE DIPROPIONATE
     Indication: LICHEN SCLEROSUS
     Dosage: 30 G, 0.05 %, ONCE A YEAR, OINTMENT
     Route: 061

REACTIONS (5)
  - Prescription drug used without a prescription [Unknown]
  - Dyspareunia [Unknown]
  - Penile erythema [Unknown]
  - Penile ulceration [Unknown]
  - Telangiectasia [Unknown]
